FAERS Safety Report 23739745 (Version 3)
Quarter: 2025Q4

REPORT INFORMATION
  Report Type: Spontaneous
  Country: US (occurrence: US)
  Receive Date: 20240414
  Receipt Date: 20251230
  Transmission Date: 20260117
  Serious: Yes (Other)
  Sender: SANOFI AVENTIS
  Company Number: US-SA-SAC20240405000289

PATIENT
  Age: 42 Year
  Sex: Male

DRUGS (1)
  1. DUPIXENT [Suspect]
     Active Substance: DUPILUMAB
     Indication: Dermatitis atopic
     Dosage: 300 MG, QOW
     Route: 058

REACTIONS (14)
  - Ankle operation [Unknown]
  - Dry skin [Unknown]
  - Skin fissures [Unknown]
  - Road traffic accident [Unknown]
  - Dry mouth [Unknown]
  - Implantation complication [Unknown]
  - Arthralgia [Unknown]
  - Skin haemorrhage [Unknown]
  - Pain in extremity [Unknown]
  - Pruritus [Unknown]
  - Urticaria [Recovered/Resolved]
  - Inappropriate schedule of product administration [Recovered/Resolved]
  - Dermatitis atopic [Unknown]
  - Therapeutic response decreased [Unknown]

NARRATIVE: CASE EVENT DATE: 20240101
